FAERS Safety Report 19111271 (Version 1)
Quarter: 2021Q2

REPORT INFORMATION
  Report Type: Spontaneous
  Country: US (occurrence: US)
  Receive Date: 20210408
  Receipt Date: 20210408
  Transmission Date: 20210717
  Serious: Yes (Hospitalization)
  Sender: FDA-Public Use
  Company Number: None

PATIENT
  Age: 62 Year
  Sex: Female

DRUGS (1)
  1. GILENYA [Suspect]
     Active Substance: FINGOLIMOD HYDROCHLORIDE
     Indication: MULTIPLE SCLEROSIS
     Route: 048

REACTIONS (6)
  - Mobility decreased [None]
  - Motor dysfunction [None]
  - Epilepsy [None]
  - Cognitive disorder [None]
  - Therapy interrupted [None]
  - Coordination abnormal [None]

NARRATIVE: CASE EVENT DATE: 20210408
